FAERS Safety Report 5168348-3 (Version None)
Quarter: 2006Q4

REPORT INFORMATION
  Report Type: 
  Country: None (occurrence: None)
  Receive Date: 20061208
  Receipt Date: 20061128
  Transmission Date: 20070319
  Serious: Yes (Other)
  Sender: FDA-Public Use
  Company Number: CA-ROCHE-472749

PATIENT
  Age: 33 Year
  Sex: Female

DRUGS (4)
  1. TAMIFLU [Suspect]
     Indication: DRUG USE FOR UNKNOWN INDICATION
     Route: 048
  2. MONOPRIL [Concomitant]
     Route: 048
  3. INDAPAMIDE [Concomitant]
     Dosage: DRUG NAME REPORTED AS NOVO-INDAPAMIDE.
     Route: 048
  4. ADVIL [Concomitant]
     Route: 048

REACTIONS (5)
  - ABDOMINAL DISTENSION [None]
  - ABDOMINAL PAIN [None]
  - FLATULENCE [None]
  - NAUSEA [None]
  - VOMITING [None]
